FAERS Safety Report 4851706-1 (Version None)
Quarter: 2005Q4

REPORT INFORMATION
  Report Type: 
  Country: None (occurrence: None)
  Receive Date: 20051209
  Receipt Date: 20051209
  Transmission Date: 20060501
  Serious: Yes (Hospitalization)
  Sender: FDA-Public Use
  Company Number: None

PATIENT
  Age: 56 Year
  Sex: Male
  Weight: 77.5651 kg

DRUGS (1)
  1. ETANERCEPT [Suspect]
     Indication: RHEUMATOID ARTHRITIS
     Dosage: 25 MG TWICE DAILY
     Dates: start: 20040101, end: 20041101

REACTIONS (3)
  - PANCYTOPENIA [None]
  - PNEUMONIA [None]
  - TREATMENT NONCOMPLIANCE [None]
